FAERS Safety Report 15509048 (Version 1)
Quarter: 2018Q4

REPORT INFORMATION
  Report Type: Spontaneous
  Country: US (occurrence: US)
  Receive Date: 20181016
  Receipt Date: 20181016
  Transmission Date: 20190205
  Serious: Yes (Disabling)
  Sender: FDA-Public Use
  Company Number: None

PATIENT
  Age: 16 Year
  Sex: Female
  Weight: 49.5 kg

DRUGS (5)
  1. BRETHINE [Suspect]
     Active Substance: TERBUTALINE SULFATE
     Indication: PREMATURE LABOUR
     Route: 048
  2. CLONIDINE. [Concomitant]
     Active Substance: CLONIDINE
  3. ZYRTEC [Concomitant]
     Active Substance: CETIRIZINE HYDROCHLORIDE
  4. ADDERALL [Concomitant]
     Active Substance: AMPHETAMINE ASPARTATE\AMPHETAMINE SULFATE\DEXTROAMPHETAMINE SACCHARATE\DEXTROAMPHETAMINE SULFATE
  5. MOTRIN [Concomitant]
     Active Substance: IBUPROFEN

REACTIONS (1)
  - Exposure during pregnancy [None]
